FAERS Safety Report 15726090 (Version 1)
Quarter: 2018Q4

REPORT INFORMATION
  Report Type: Spontaneous
  Country: US (occurrence: US)
  Receive Date: 20181216
  Receipt Date: 20181216
  Transmission Date: 20190205
  Serious: No
  Sender: FDA-Public Use
  Company Number: US-SUPERNUS PHARMACEUTICALS, INC.-2018SUP00265

PATIENT
  Age: 52 Year
  Sex: Female
  Weight: 68.93 kg

DRUGS (6)
  1. TROKENDI XR [Suspect]
     Active Substance: TOPIRAMATE
     Indication: MIGRAINE
     Dosage: 100 MG, 2X/DAY
     Route: 048
     Dates: start: 20180803, end: 20180811
  2. TROKENDI XR [Suspect]
     Active Substance: TOPIRAMATE
     Dosage: 50 MG, 2X/DAY
     Route: 048
     Dates: start: 20180720, end: 20180726
  3. CALCIUM [Concomitant]
     Active Substance: CALCIUM
  4. TROKENDI XR [Suspect]
     Active Substance: TOPIRAMATE
     Dosage: 75 MG, 2X/DAY
     Route: 048
     Dates: start: 20180727, end: 20180802
  5. TROKENDI XR [Suspect]
     Active Substance: TOPIRAMATE
     Indication: MIGRAINE
     Dosage: 25 MG, 2X/DAY
     Route: 048
     Dates: start: 20180713, end: 20180719
  6. VITAMIN D [Concomitant]
     Active Substance: CHOLECALCIFEROL

REACTIONS (13)
  - Mental impairment [Recovered/Resolved]
  - Speech disorder [Recovered/Resolved]
  - Muscle contractions involuntary [Recovered/Resolved]
  - Personality change [Recovered/Resolved]
  - Vision blurred [Recovered/Resolved]
  - Swollen tear duct [Recovered/Resolved]
  - Muscle spasms [Recovered/Resolved]
  - Aggression [Recovered/Resolved]
  - Road traffic accident [Recovered/Resolved]
  - Neuropathy peripheral [Recovered/Resolved]
  - Eyelid margin crusting [Recovered/Resolved]
  - Sedation [Recovered/Resolved]
  - Unevaluable event [Recovered/Resolved]

NARRATIVE: CASE EVENT DATE: 2018
